FAERS Safety Report 9202294 (Version 1)
Quarter: 2013Q2

REPORT INFORMATION
  Report Type: Spontaneous
  Country: US (occurrence: US)
  Receive Date: 20130401
  Receipt Date: 20130401
  Transmission Date: 20140414
  Serious: Yes (Hospitalization)
  Sender: FDA-Public Use
  Company Number: PHEH2013US000744

PATIENT
  Sex: Female

DRUGS (10)
  1. GLEEVEC [Suspect]
     Indication: CHRONIC MYELOID LEUKAEMIA
     Dosage: 400 MG, PER DAY
     Dates: start: 2008
  2. GLEEVEC [Suspect]
     Dosage: UNK UKN, UNK
     Dates: start: 201210
  3. GLEEVEC [Suspect]
     Dosage: 400 MG, DAILY
     Route: 048
  4. ONDANSETRON [Suspect]
     Indication: NAUSEA
     Dosage: 8 MG, UNK
  5. ALLOPURINOL [Concomitant]
     Dosage: UNK UKN, UNK
  6. STOOL SOFTENER [Concomitant]
     Dosage: UNK UKN, UNK
  7. SIMVASTATIN [Concomitant]
     Dosage: UNK UKN, UNK
  8. FOLIC ACID [Concomitant]
     Dosage: UNK UKN, UNK
  9. ADDITIVA CALCIUM [Concomitant]
     Dosage: UNK UKN, UNK
  10. FISH OIL [Concomitant]
     Dosage: UNK UKN, UNK

REACTIONS (7)
  - Thrombosis [Recovered/Resolved]
  - Back pain [Unknown]
  - Gastrooesophageal reflux disease [Unknown]
  - Blood count abnormal [Unknown]
  - Diarrhoea [Unknown]
  - Abdominal pain upper [Unknown]
  - Nausea [Unknown]
